FAERS Safety Report 17293588 (Version 1)
Quarter: 2020Q1

REPORT INFORMATION
  Report Type: Spontaneous
  Country: US (occurrence: US)
  Receive Date: 20200102
  Receipt Date: 20200102
  Transmission Date: 20200409
  Serious: Yes (Other)
  Sender: FDA-Public Use
  Company Number: None

PATIENT
  Age: 81 Year
  Sex: Female
  Weight: 71.21 kg

DRUGS (4)
  1. RISEDRONATE 150MG TAB FOR ACTONEL150MG TAB [Suspect]
     Active Substance: RISEDRONATE SODIUM
     Indication: BONE DISORDER
     Dosage: ?          QUANTITY:150 MG MILLIGRAM(S);?
     Route: 048
     Dates: start: 20190815, end: 20191015
  2. VITAMIN D3 [Concomitant]
     Active Substance: CHOLECALCIFEROL
  3. LIPITOR [Concomitant]
     Active Substance: ATORVASTATIN CALCIUM
  4. BIOATEZE [Concomitant]

REACTIONS (3)
  - Pain in jaw [None]
  - Trismus [None]
  - Joint noise [None]

NARRATIVE: CASE EVENT DATE: 20191015
